FAERS Safety Report 15280415 (Version 2)
Quarter: 2018Q3

REPORT INFORMATION
  Report Type: Spontaneous
  Country: SE (occurrence: SE)
  Receive Date: 20180815
  Receipt Date: 20180821
  Transmission Date: 20181010
  Serious: Yes (Other)
  Sender: FDA-Public Use
  Company Number: SE-GLAXOSMITHKLINE-SE2018GSK144621

PATIENT
  Age: 59 Year
  Sex: Male

DRUGS (2)
  1. METHYLPHENIDATE. [Concomitant]
     Active Substance: METHYLPHENIDATE
     Indication: PRODUCT USED FOR UNKNOWN INDICATION
     Dosage: UNK
  2. VOXRA [Suspect]
     Active Substance: BUPROPION HYDROCHLORIDE
     Indication: BIPOLAR DISORDER
     Dosage: 300 MG, UNK
     Route: 048

REACTIONS (7)
  - Blood glucose increased [Recovered/Resolved]
  - Type 2 diabetes mellitus [Unknown]
  - Hypomania [Unknown]
  - Fatigue [Unknown]
  - Urine analysis abnormal [Unknown]
  - Hypoglycaemia [Recovered/Resolved]
  - Intentional overdose [Unknown]

NARRATIVE: CASE EVENT DATE: 2018
